FAERS Safety Report 18346092 (Version 1)
Quarter: 2020Q4

REPORT INFORMATION
  Report Type: Spontaneous
  Country: US (occurrence: US)
  Receive Date: 20201005
  Receipt Date: 20201005
  Transmission Date: 20210114
  Serious: No
  Sender: FDA-Public Use
  Company Number: US-JAZZ-2020-US-004664

PATIENT
  Age: 29 Year
  Sex: Female

DRUGS (1)
  1. SUNOSI [Suspect]
     Active Substance: SOLRIAMFETOL
     Indication: NARCOLEPSY
     Dosage: 150 MILLIGRAM, QD
     Route: 048
     Dates: start: 20200312, end: 202003

REACTIONS (1)
  - Exposure during pregnancy [Unknown]
